FAERS Safety Report 7331020-5 (Version None)
Quarter: 2011Q1

REPORT INFORMATION
  Report Type: 
  Country: None (occurrence: None)
  Receive Date: 20110304
  Receipt Date: 20110222
  Transmission Date: 20110831
  Serious: Yes (Death, Life-Threatening, Hospitalization, Other)
  Sender: FDA-Public Use
  Company Number: FR-JNJFOC-20090706406

PATIENT
  Sex: Male
  Weight: 70 kg

DRUGS (11)
  1. ZOVIRAX [Concomitant]
     Indication: ANTIBIOTIC THERAPY
  2. IMIPENEM [Suspect]
     Indication: PNEUMONIA
     Route: 041
     Dates: start: 20090703, end: 20090713
  3. HEPARIN [Suspect]
     Indication: ANTICOAGULANT THERAPY
  4. SUFENTA PRESERVATIVE FREE [Concomitant]
     Indication: SEDATION
  5. NIMBEX [Concomitant]
     Indication: SEDATION
  6. NEXIUM [Concomitant]
  7. SOLU-MEDROL [Suspect]
     Indication: ILL-DEFINED DISORDER
  8. PLACEBO [Suspect]
     Indication: PNEUMONIA
     Route: 041
  9. LEVOPHED [Concomitant]
     Indication: CARDIOVASCULAR DISORDER
  10. KETAMINE HCL [Concomitant]
     Indication: SEDATION
  11. HYPNOVEL [Concomitant]
     Indication: SEDATION

REACTIONS (5)
  - ACUTE RESPIRATORY DISTRESS SYNDROME [None]
  - MULTI-ORGAN FAILURE [None]
  - RENAL TUBULAR ACIDOSIS [None]
  - GASTRIC HAEMORRHAGE [None]
  - PNEUMONIA [None]
